FAERS Safety Report 20380645 (Version 10)
Quarter: 2022Q4

REPORT INFORMATION
  Report Type: Spontaneous
  Country: BE (occurrence: BE)
  Receive Date: 20220127
  Receipt Date: 20221004
  Transmission Date: 20230113
  Serious: Yes (Hospitalization, Other)
  Sender: FDA-Public Use
  Company Number: BE-Accord-251404

PATIENT
  Age: 84 Year
  Sex: Female
  Weight: 62.90 kg

DRUGS (30)
  1. GEMCITABINE HYDROCHLORIDE [Suspect]
     Active Substance: GEMCITABINE HYDROCHLORIDE
     Indication: Diffuse large B-cell lymphoma
     Dosage: 1Q2W
     Route: 042
     Dates: start: 20211115, end: 20220118
  2. OXALIPLATIN [Suspect]
     Active Substance: OXALIPLATIN
     Indication: Diffuse large B-cell lymphoma
     Dosage: 1Q2W
     Route: 042
     Dates: start: 20211115, end: 20220118
  3. RITUXIMAB [Suspect]
     Active Substance: RITUXIMAB
     Indication: Diffuse large B-cell lymphoma
     Dosage: 1Q2W
     Route: 042
     Dates: start: 20211115, end: 20220118
  4. SOLU-MEDROL [Suspect]
     Active Substance: METHYLPREDNISOLONE SODIUM SUCCINATE
     Indication: Prophylaxis
     Dosage: SINGLE
     Route: 042
     Dates: start: 20211115, end: 20211115
  5. ASPIRIN [Concomitant]
     Active Substance: ASPIRIN
     Dates: start: 20120214
  6. ATORVASTATIN CALCIUM [Concomitant]
     Active Substance: ATORVASTATIN CALCIUM
     Dates: start: 20200824
  7. DAFALGAN [Concomitant]
     Active Substance: ACETAMINOPHEN
     Dates: start: 20211115
  8. ALIZAPRIDE HYDROCHLORIDE [Concomitant]
     Active Substance: ALIZAPRIDE HYDROCHLORIDE
     Dosage: DOSE: 150 MG
     Dates: start: 20211117
  9. METFORMIN HYDROCHLORIDE [Concomitant]
     Active Substance: METFORMIN HYDROCHLORIDE
     Dates: start: 20211115
  10. MINITRAN [Concomitant]
     Active Substance: NITROGLYCERIN
     Dates: start: 20120214
  11. MOVICOL [Concomitant]
     Active Substance: POLYETHYLENE GLYCOL 3350\POTASSIUM CHLORIDE\SODIUM BICARBONATE\SODIUM CHLORIDE
     Dates: start: 20200928
  12. NEULASTA [Concomitant]
     Active Substance: PEGFILGRASTIM
     Dates: start: 20211116, end: 20220210
  13. Nebivolol hydrochloride, Hydrochlorothiazide [Concomitant]
     Dates: start: 20201211
  14. NEBIVOLOL [Concomitant]
     Active Substance: NEBIVOLOL
     Dates: start: 20211115
  15. PALONOSETRON [Concomitant]
     Active Substance: PALONOSETRON
     Dates: start: 20211115, end: 20220209
  16. PANTOMED [Concomitant]
     Indication: Gastric ulcer
     Dates: start: 20220101
  17. MAGNESIUM [Concomitant]
     Active Substance: MAGNESIUM
     Dates: start: 20210611
  18. MEDICA [Concomitant]
     Dates: start: 20211230
  19. ZYRTEC [Concomitant]
     Active Substance: CETIRIZINE HYDROCHLORIDE
     Dates: start: 20211115, end: 20220209
  20. FOLIC ACID [Concomitant]
     Active Substance: FOLIC ACID
     Dates: start: 20211231
  21. PRIVIGEN [Concomitant]
     Active Substance: HUMAN IMMUNOGLOBULIN G
     Dates: start: 20220107, end: 20220201
  22. TEMESTA [Concomitant]
     Dates: start: 20220104, end: 20220105
  23. MIRTAZAPINE [Concomitant]
     Active Substance: MIRTAZAPINE
     Dates: start: 20211215
  24. TOULARYNX DEXTROMETHORPHAN [Concomitant]
     Dates: start: 20220102
  25. IMODIUM [Concomitant]
     Active Substance: LOPERAMIDE HYDROCHLORIDE
     Dates: start: 20220118
  26. MAGNETOP [Concomitant]
     Dates: start: 20220202, end: 20220204
  27. REMERGON [Concomitant]
     Active Substance: MIRTAZAPINE
     Dates: start: 20220201, end: 20220203
  28. ULTRA K [Concomitant]
     Dates: start: 20220201, end: 20220203
  29. SOLU-MEDROL [Suspect]
     Active Substance: METHYLPREDNISOLONE SODIUM SUCCINATE
     Indication: Prophylaxis
     Dosage: SINGLE
     Route: 042
     Dates: start: 20211129, end: 20211129
  30. SOLU-MEDROL [Suspect]
     Active Substance: METHYLPREDNISOLONE SODIUM SUCCINATE
     Indication: Prophylaxis
     Dosage: SINGLE
     Route: 042
     Dates: start: 20211213, end: 20211213

REACTIONS (3)
  - Pneumonia [Recovered/Resolved]
  - Gastric ulcer [Not Recovered/Not Resolved]
  - Condition aggravated [Not Recovered/Not Resolved]

NARRATIVE: CASE EVENT DATE: 20211228
